FAERS Safety Report 16011470 (Version 5)
Quarter: 2019Q2

REPORT INFORMATION
  Report Type: Spontaneous
  Country: JP (occurrence: JP)
  Receive Date: 20190227
  Receipt Date: 20190501
  Transmission Date: 20190711
  Serious: Yes (Hospitalization)
  Sender: FDA-Public Use
  Company Number: JP-AMGEN-JPNSP2019028422

PATIENT
  Age: 76 Year
  Sex: Female
  Weight: 39.1 kg

DRUGS (9)
  1. FESIN [SACCHARATED IRON OXIDE] [Concomitant]
     Dosage: 40 MILLIGRAM, Q4WK
     Route: 065
     Dates: end: 20181219
  2. SENNOSIDE A+B CALCIUM [Concomitant]
     Active Substance: SENNOSIDES A AND B
     Indication: CONSTIPATION
     Dosage: 48 MILLIGRAM
     Route: 048
     Dates: start: 20170823, end: 20181225
  3. FOSRENOL [Concomitant]
     Active Substance: LANTHANUM CARBONATE
     Indication: HYPERPHOSPHATAEMIA
     Dosage: 1500 MILLIGRAM
     Route: 048
     Dates: start: 20171020, end: 20181225
  4. OXAROL [Concomitant]
     Active Substance: MAXACALCITOL
     Dosage: 5 MICROGRAM, 3 TIMES/WK
     Route: 042
     Dates: start: 20181012, end: 20181224
  5. EPOGIN [Concomitant]
     Active Substance: ERYTHROPOIETIN
     Dosage: 9000 INTERNATIONAL UNIT, QWK
     Route: 065
     Dates: end: 20181224
  6. PARSABIV [Suspect]
     Active Substance: ETELCALCETIDE HYDROCHLORIDE
     Indication: HYPERPARATHYROIDISM SECONDARY
     Dosage: 5 MILLIGRAM, 3 TIMES/WK
     Route: 010
     Dates: start: 20181119, end: 20181207
  7. NEXIUM [Concomitant]
     Active Substance: ESOMEPRAZOLE MAGNESIUM
     Indication: GASTROOESOPHAGEAL REFLUX DISEASE
     Dosage: 20 MILLIGRAM
     Route: 048
     Dates: start: 20171215, end: 20181224
  8. PARSABIV [Suspect]
     Active Substance: ETELCALCETIDE HYDROCHLORIDE
     Dosage: 2.5 MILLIGRAM, 3 TIMES/WK
     Route: 010
     Dates: start: 20181210, end: 20181224
  9. P-TOL [SUCROFERRIC OXYHYDROXIDE] [Concomitant]
     Indication: HYPERPHOSPHATURIA
     Dosage: 750 MILLIGRAM
     Route: 048
     Dates: start: 20170823, end: 20181225

REACTIONS (1)
  - Airway burns [Unknown]

NARRATIVE: CASE EVENT DATE: 20181225
